FAERS Safety Report 6424293-4 (Version None)
Quarter: 2009Q4

REPORT INFORMATION
  Report Type: 
  Country: None (occurrence: None)
  Receive Date: 20091103
  Receipt Date: 20091022
  Transmission Date: 20100525
  Serious: Yes (Hospitalization, Other)
  Sender: FDA-Public Use
  Company Number: GB-RANBAXY-2009RR-26923

PATIENT
  Age: 90 Year
  Sex: Female

DRUGS (5)
  1. TRAMADOL HCL [Suspect]
     Indication: PAIN
     Dosage: 50 MG, QID
     Route: 065
  2. BENDROFLUMETHIAZIDE [Suspect]
     Indication: HYPERTENSION
     Dosage: 2.5 MG, QD
     Route: 048
  3. WARFARIN SODIUM [Suspect]
     Indication: ATRIAL FIBRILLATION
     Dosage: 5 MG, UNK
     Route: 048
  4. WARFARIN SODIUM [Suspect]
     Dosage: 5 MG, QD
     Route: 065
  5. PARACETAMOL [Suspect]
     Indication: ANALGESIC THERAPY
     Dosage: 1 G, QID
     Route: 048

REACTIONS (12)
  - ACCIDENTAL OVERDOSE [None]
  - CONFUSIONAL STATE [None]
  - CONSTIPATION [None]
  - DELIRIUM [None]
  - DRUG ADMINISTRATION ERROR [None]
  - FALL [None]
  - HAEMATOMA [None]
  - HAEMATOMA EVACUATION [None]
  - HYPONATRAEMIA [None]
  - INTERNATIONAL NORMALISED RATIO INCREASED [None]
  - MEMORY IMPAIRMENT [None]
  - MUSCULOSKELETAL PAIN [None]
